FAERS Safety Report 26117746 (Version 1)
Quarter: 2025Q4

REPORT INFORMATION
  Report Type: Spontaneous
  Country: US (occurrence: None)
  Receive Date: 20251203
  Receipt Date: 20251203
  Transmission Date: 20260118
  Serious: Yes (Hospitalization)
  Sender: FDA-CTU
  Company Number: None

PATIENT
  Age: 73 Year
  Sex: Female

DRUGS (10)
  1. LENALIDOMIDE [Suspect]
     Active Substance: LENALIDOMIDE
     Indication: Plasma cell myeloma refractory
     Dosage: OTHER FREQUENCY : DAILY FOR 14 DAYS , AND THEN TAKE 14 DAYS OFF;?
     Route: 048
     Dates: start: 20250214
  2. AMOX/KCLAV [Concomitant]
  3. ASPIRIN [Concomitant]
     Active Substance: ASPIRIN
  4. CEPHALEXIN [Concomitant]
     Active Substance: CEPHALEXIN
  5. DARZALEX [Concomitant]
     Active Substance: DARATUMUMAB
  6. FLUCONAZOLE [Concomitant]
     Active Substance: FLUCONAZOLE
  7. METOPROL SUS [Concomitant]
  8. MORPHINE SULFATE [Concomitant]
     Active Substance: MORPHINE SULFATE
  9. PHENERGAN [Concomitant]
     Active Substance: PROMETHAZINE HYDROCHLORIDE
  10. PROCHLORPER [Concomitant]

REACTIONS (1)
  - Urinary tract infection [None]

NARRATIVE: CASE EVENT DATE: 20251201
